FAERS Safety Report 8985092 (Version 2)
Quarter: 2013Q1

REPORT INFORMATION
  Report Type: Spontaneous
  Country: CO (occurrence: CO)
  Receive Date: 20121226
  Receipt Date: 20130101
  Transmission Date: 20140127
  Serious: Yes (Other)
  Sender: FDA-Public Use
  Company Number: CO-AMGEN-COLSP2012082348

PATIENT
  Age: 53 Year
  Sex: Female

DRUGS (1)
  1. ENBREL [Suspect]
     Indication: RHEUMATOID ARTHRITIS
     Dosage: 50 MG, WEEKLY
     Route: 058
     Dates: start: 2007

REACTIONS (12)
  - Hand fracture [Recovering/Resolving]
  - Haemorrhage [Recovering/Resolving]
  - Drug ineffective [Unknown]
  - Lip swelling [Not Recovered/Not Resolved]
  - Nasal dryness [Not Recovered/Not Resolved]
  - Epistaxis [Not Recovered/Not Resolved]
  - Dermatitis [Not Recovered/Not Resolved]
  - Tooth loss [Not Recovered/Not Resolved]
  - Arthralgia [Not Recovered/Not Resolved]
  - Movement disorder [Not Recovered/Not Resolved]
  - Arthritis [Recovered/Resolved]
  - Influenza [Recovered/Resolved]
